FAERS Safety Report 11701713 (Version 1)
Quarter: 2015Q4

REPORT INFORMATION
  Report Type: Spontaneous
  Country: US (occurrence: US)
  Receive Date: 20151105
  Receipt Date: 20151105
  Transmission Date: 20160304
  Serious: No
  Sender: FDA-Public Use
  Company Number: US-MALLINCKRODT-T201501991

PATIENT
  Age: 85 Year
  Sex: Female
  Weight: 56 kg

DRUGS (4)
  1. FENTANYL TRANSDERMAL SYSTEM [Suspect]
     Active Substance: FENTANYL
     Dosage: 75 UG/HR, Q3D (DAY 1)
     Route: 062
     Dates: start: 2012
  2. FENTANYL TRANSDERMAL SYSTEM [Suspect]
     Active Substance: FENTANYL
     Indication: PAIN
     Dosage: 100 UG/HR, Q3D (DAY 1)
     Route: 062
     Dates: start: 2012
  3. FENTANYL TRANSDERMAL SYSTEM [Suspect]
     Active Substance: FENTANYL
     Dosage: 75 UG/HR, Q3D (DAY 3)
     Route: 062
     Dates: start: 2012
  4. FENTANYL TRANSDERMAL SYSTEM [Suspect]
     Active Substance: FENTANYL
     Dosage: 100 UG/HR, Q3D (DAY 2)
     Route: 062
     Dates: start: 2012

REACTIONS (4)
  - Application site pain [Unknown]
  - Application site burn [Recovering/Resolving]
  - Application site pruritus [Unknown]
  - Product adhesion issue [Not Recovered/Not Resolved]

NARRATIVE: CASE EVENT DATE: 201408
